FAERS Safety Report 5922605-9 (Version None)
Quarter: 2008Q4

REPORT INFORMATION
  Report Type: 
  Country: None (occurrence: None)
  Receive Date: 20081017
  Receipt Date: 20081013
  Transmission Date: 20090506
  Serious: Yes (Other)
  Sender: FDA-Public Use
  Company Number: PHEH2008US08654

PATIENT
  Sex: Male
  Weight: 112.2 kg

DRUGS (5)
  1. TEKTURNA [Suspect]
     Indication: HYPERTENSION
     Dosage: 150 MG, QD
     Route: 048
     Dates: start: 20080401, end: 20080701
  2. ZOCOR [Concomitant]
     Dosage: 40 MG, UNK
     Dates: end: 20080501
  3. ALLOPURINOL [Concomitant]
     Dosage: 300 MG, UNK
  4. METFORMIN HYDROCHLORIDE [Concomitant]
     Dosage: 500 MG, UNK
  5. SIMVASTATIN [Concomitant]

REACTIONS (2)
  - BLOOD CREATINE PHOSPHOKINASE INCREASED [None]
  - MYALGIA [None]
